FAERS Safety Report 8039637-X (Version None)
Quarter: 2012Q1

REPORT INFORMATION
  Report Type: 
  Country: None (occurrence: None)
  Receive Date: 20120111
  Receipt Date: 20111220
  Transmission Date: 20120608
  Serious: No
  Sender: FDA-Public Use
  Company Number: US-AMGEN-USASP2011062756

PATIENT
  Age: 74 Year
  Sex: Female

DRUGS (9)
  1. ASPIRIN [Concomitant]
     Dosage: 81 MG, UNK
  2. ALLOPURINOL [Concomitant]
     Dosage: 100 MG, UNK
  3. PROMETH VC W/ CODEINE [Concomitant]
  4. GUANFACINE HYDROCHLORIDE [Concomitant]
     Dosage: 1 MG, UNK
  5. FISH OIL NATURE MADE [Concomitant]
     Dosage: UNK
  6. SIMVASTATIN [Concomitant]
     Dosage: 40 MG, UNK
  7. ENBREL [Suspect]
     Indication: PSORIASIS
     Dosage: 50 MG, QWK
     Dates: start: 20111107
  8. GABAPENTIN [Concomitant]
     Dosage: 300 MG, UNK
  9. NITROGLYCERIN [Concomitant]
     Dosage: 0.4 MG, UNK

REACTIONS (7)
  - SKIN HAEMORRHAGE [None]
  - SCRATCH [None]
  - INJECTION SITE HAEMATOMA [None]
  - SCAB [None]
  - INJECTION SITE HAEMORRHAGE [None]
  - SKIN ULCER [None]
  - INJECTION SITE SWELLING [None]
